FAERS Safety Report 4771590-4 (Version None)
Quarter: 2005Q3

REPORT INFORMATION
  Report Type: 
  Country: None (occurrence: None)
  Receive Date: 20050914
  Receipt Date: 20050914
  Transmission Date: 20060218
  Serious: Yes (Life-Threatening)
  Sender: FDA-Public Use
  Company Number: None

PATIENT
  Age: 60 Year
  Sex: Female
  Weight: 92.0802 kg

DRUGS (1)
  1. MEDLINE ALCOHOL FREE MOUTHWASH MDS095029 [Suspect]

REACTIONS (5)
  - BACTERIAL INFECTION [None]
  - PHARMACEUTICAL PRODUCT COMPLAINT [None]
  - PNEUMONIA [None]
  - POOR QUALITY DRUG ADMINISTERED [None]
  - TRACHEOBRONCHITIS [None]
